FAERS Safety Report 5530276-9 (Version None)
Quarter: 2007Q4

REPORT INFORMATION
  Report Type: 
  Country: None (occurrence: None)
  Receive Date: 20071127
  Receipt Date: 20071127
  Transmission Date: 20080405
  Serious: Yes (Other)
  Sender: FDA-Public Use
  Company Number: None

PATIENT
  Age: 33 Year
  Sex: Male
  Weight: 100 kg

DRUGS (1)
  1. CHANTIX [Suspect]
     Indication: SMOKING CESSATION THERAPY
     Dosage: 0.5MG BID PO
     Route: 048
     Dates: start: 20070803, end: 20070810

REACTIONS (5)
  - ANXIETY [None]
  - DIZZINESS [None]
  - NAUSEA [None]
  - VERTIGO [None]
  - VISION BLURRED [None]
